FAERS Safety Report 5639542-X (Version None)
Quarter: 2008Q1

REPORT INFORMATION
  Report Type: 
  Country: None (occurrence: None)
  Receive Date: 20080226
  Receipt Date: 20080220
  Transmission Date: 20080703
  Serious: Yes (Hospitalization)
  Sender: FDA-Public Use
  Company Number: FR-MERCK-0802FRA00070

PATIENT
  Age: 65 Year
  Sex: Female

DRUGS (24)
  1. COZAAR [Suspect]
     Indication: HYPERTENSION
     Route: 048
     Dates: end: 20080117
  2. PACLITAXEL [Suspect]
     Indication: LUNG NEOPLASM MALIGNANT
     Route: 042
     Dates: start: 20071121, end: 20071121
  3. PACLITAXEL [Suspect]
     Route: 042
     Dates: start: 20071214, end: 20071214
  4. PACLITAXEL [Suspect]
     Route: 042
     Dates: start: 20080111, end: 20080111
  5. CARBOPLATIN [Suspect]
     Indication: LUNG NEOPLASM MALIGNANT
     Route: 042
     Dates: start: 20071121, end: 20071121
  6. CARBOPLATIN [Suspect]
     Route: 042
     Dates: start: 20071214, end: 20071214
  7. CARBOPLATIN [Suspect]
     Route: 042
     Dates: start: 20080111, end: 20080111
  8. RANITIDINE HYDROCHLORIDE [Concomitant]
     Route: 065
  9. DEXCHLORPHENIRAMINE MALEATE [Concomitant]
     Route: 065
  10. ONDANSETRON HYDROCHLORIDE [Suspect]
     Indication: PROPHYLAXIS OF NAUSEA AND VOMITING
     Route: 042
     Dates: start: 20071121, end: 20071121
  11. ONDANSETRON HYDROCHLORIDE [Suspect]
     Route: 042
     Dates: start: 20071214, end: 20071214
  12. ONDANSETRON HYDROCHLORIDE [Suspect]
     Route: 042
     Dates: start: 20080111, end: 20080111
  13. MIDAZOLAM HYDROCHLORIDE [Concomitant]
     Route: 065
     Dates: start: 20071001
  14. METHYLPREDNISOLONE SODIUM SUCCINATE [Suspect]
     Route: 042
     Dates: start: 20071001
  15. METOCLOPRAMIDE HYDROCHLORIDE [Concomitant]
     Route: 065
     Dates: start: 20071001
  16. KETOPROFEN [Suspect]
     Route: 042
     Dates: start: 20071001
  17. ESOMEPRAZOLE MAGNESIUM [Concomitant]
     Route: 065
     Dates: start: 20071001
  18. ENOXAPARIN SODIUM [Concomitant]
     Route: 065
     Dates: start: 20071001
  19. MIANSERIN HYDROCHLORIDE [Concomitant]
     Route: 065
     Dates: start: 20071001
  20. ZOLPIDEM TARTRATE [Concomitant]
     Route: 065
     Dates: start: 20071001
  21. TRIMEBUTINE MALEATE [Concomitant]
     Route: 065
     Dates: start: 20071001
  22. POLYETHYLENE GLYCOL 4000 [Concomitant]
     Route: 065
     Dates: start: 20071001
  23. CALCIUM PHOSPHATE, TRIBASIC AND CHOLECALCIFEROL [Concomitant]
     Route: 065
     Dates: start: 20071001
  24. LEVOTHYROXINE SODIUM [Suspect]
     Indication: HYPOTHYROIDISM
     Route: 048

REACTIONS (2)
  - MYOCARDIAL ISCHAEMIA [None]
  - SENSE OF OPPRESSION [None]
